FAERS Safety Report 9843570 (Version 1)
Quarter: 2013Q4

REPORT INFORMATION
  Report Type: Spontaneous
  Country: US (occurrence: None)
  Receive Date: 20131219
  Receipt Date: 20131219
  Transmission Date: 20140711
  Serious: Yes (Hospitalization)
  Sender: FDA-Public Use
  Company Number: 163-20785-13032026

PATIENT
  Age: 61 Year
  Sex: Female
  Weight: 54.4 kg

DRUGS (1)
  1. THALOMID (THALIDOMIDE) (100 MILLIGRAM, CAPSULES) [Suspect]
     Indication: PLASMA CELL MYELOMA
     Dosage: 28 IN 28 D,
     Route: 048
     Dates: start: 20120313

REACTIONS (5)
  - Clostridium difficile infection [None]
  - Febrile neutropenia [None]
  - Pneumonia [None]
  - Sinusitis [None]
  - Plasma cell myeloma [None]
